FAERS Safety Report 20011034 (Version 2)
Quarter: 2021Q4

REPORT INFORMATION
  Report Type: Spontaneous
  Country: CO (occurrence: CO)
  Receive Date: 20211028
  Receipt Date: 20211103
  Transmission Date: 20220304
  Serious: No
  Sender: FDA-Public Use
  Company Number: CO-PFIZER INC-2020392756

PATIENT
  Age: 11 Year
  Sex: Female

DRUGS (1)
  1. GENOTROPIN [Suspect]
     Active Substance: SOMATROPIN
     Dosage: 1.2 MG, DAILY (EVERY NIGHT)
     Route: 058
     Dates: start: 20200926

REACTIONS (2)
  - Wrong technique in device usage process [Unknown]
  - Product dose omission issue [Unknown]

NARRATIVE: CASE EVENT DATE: 20201005
